FAERS Safety Report 4965262-0 (Version None)
Quarter: 2006Q1

REPORT INFORMATION
  Report Type: 
  Country: None (occurrence: None)
  Receive Date: 20060201
  Receipt Date: 20051228
  Transmission Date: 20060701
  Serious: No
  Sender: FDA-Public Use
  Company Number: 2005PV006345

PATIENT
  Age: 55 Year
  Sex: Female
  Weight: 188.2428 kg

DRUGS (7)
  1. BYETTA [Suspect]
     Indication: DIABETES MELLITUS NON-INSULIN-DEPENDENT
     Dosage: 5 MCG;BID;SC
     Route: 058
     Dates: start: 20051227
  2. LANTUS [Concomitant]
  3. MERIDIA [Concomitant]
  4. COMPAZINE [Concomitant]
  5. COUMADIN [Concomitant]
  6. NOVOLOG [Concomitant]
  7. OXYGEN [Concomitant]

REACTIONS (2)
  - DECREASED APPETITE [None]
  - DRY MOUTH [None]
